FAERS Safety Report 16606791 (Version 7)
Quarter: 2019Q3

REPORT INFORMATION
  Report Type: Spontaneous
  Country: BR (occurrence: BR)
  Receive Date: 20190722
  Receipt Date: 20190826
  Transmission Date: 20191004
  Serious: Yes (Life-Threatening, Hospitalization, Other)
  Sender: FDA-Public Use
  Company Number: BR-JAZZ-2019-BR-010017

PATIENT
  Age: 66 Year
  Sex: Female
  Weight: 73 kg

DRUGS (8)
  1. AMIKACIN. [Concomitant]
     Active Substance: AMIKACIN
     Indication: SEPSIS
     Dosage: 1 G, QD
     Route: 042
     Dates: start: 20190711
  2. ZERBAXA [Concomitant]
     Active Substance: CEFTOLOZANE SULFATE\TAZOBACTAM SODIUM
     Indication: PRODUCT USED FOR UNKNOWN INDICATION
     Dosage: 1500 MG, EVERY EIGHT HOURS
     Route: 042
     Dates: start: 20190716
  3. DAPTOMYCIN. [Concomitant]
     Active Substance: DAPTOMYCIN
     Indication: SEPSIS
     Dosage: 500 MG, QD
     Route: 042
     Dates: start: 20190714
  4. TACROLIMUS. [Concomitant]
     Active Substance: TACROLIMUS
     Indication: PROPHYLAXIS AGAINST GRAFT VERSUS HOST DISEASE
     Dosage: UNK
     Dates: start: 20190624
  5. DEFITELIO [Suspect]
     Active Substance: DEFIBROTIDE SODIUM
     Indication: VENOOCCLUSIVE DISEASE
     Dosage: 1832 MG, QD
     Route: 042
     Dates: start: 20190709, end: 20190807
  6. MICAFUNGIN. [Concomitant]
     Active Substance: MICAFUNGIN SODIUM
     Indication: ANTIFUNGAL PROPHYLAXIS
     Dosage: UNK
     Dates: start: 20190803
  7. ACICLOVIR [Concomitant]
     Active Substance: ACYCLOVIR
     Indication: ANTIVIRAL PROPHYLAXIS
     Dosage: UNK
     Dates: start: 20190610
  8. URSACOL [Concomitant]
     Active Substance: URSODIOL
     Indication: PROPHYLAXIS
     Dosage: UNK
     Dates: start: 20190610

REACTIONS (6)
  - Generalised oedema [Recovered/Resolved]
  - Pyrexia [Not Recovered/Not Resolved]
  - Hypotension [Recovered/Resolved]
  - Infection [Recovered/Resolved]
  - Renal impairment [Not Recovered/Not Resolved]
  - Septic shock [Recovered/Resolved]

NARRATIVE: CASE EVENT DATE: 20190708
